FAERS Safety Report 8429805-7 (Version None)
Quarter: 2012Q2

REPORT INFORMATION
  Report Type: 
  Country: None (occurrence: None)
  Receive Date: 20120612
  Receipt Date: 20120605
  Transmission Date: 20120825
  Serious: Yes (Other)
  Sender: FDA-Public Use
  Company Number: US-FRI-1000025028

PATIENT
  Sex: Female
  Weight: 67.13 kg

DRUGS (7)
  1. THYROID TAB [Suspect]
     Indication: HYPOTHYROIDISM
     Dosage: 60-90 MG DAILY
     Route: 048
     Dates: start: 20110216, end: 20111021
  2. IMITREX [Concomitant]
     Indication: MIGRAINE
     Dosage: AS NEEDED
  3. M.V.I. [Concomitant]
  4. ALBUTEROL [Concomitant]
     Dosage: AS NEEDED
  5. FISH OIL [Concomitant]
  6. CALCIUM [Concomitant]
  7. LOSARTAN [Concomitant]
     Indication: HYPERTENSION

REACTIONS (5)
  - CONSTIPATION [None]
  - DRUG INEFFECTIVE [None]
  - FATIGUE [None]
  - ALOPECIA [None]
  - BLOOD THYROID STIMULATING HORMONE INCREASED [None]
